FAERS Safety Report 6370700-5 (Version None)
Quarter: 2009Q3

REPORT INFORMATION
  Report Type: 
  Country: None (occurrence: None)
  Receive Date: 20090923
  Receipt Date: 20070724
  Transmission Date: 20100115
  Serious: Yes (Other)
  Sender: FDA-Public Use
  Company Number: US-ASTRAZENECA-2006UW25209

PATIENT
  Sex: Female
  Weight: 71.7 kg

DRUGS (17)
  1. SEROQUEL [Suspect]
     Indication: DEPRESSION
     Route: 048
  2. SEROQUEL [Suspect]
     Dosage: 50-300 MG
     Route: 048
     Dates: start: 20001027
  3. HALOPERIDOL [Concomitant]
     Dosage: 1 MG DISPENSED
     Dates: start: 20060215
  4. CLONAZEPAM [Concomitant]
     Dosage: 0.5 MG DISPENSED
     Dates: start: 20060215
  5. XANAX [Concomitant]
     Indication: ANXIETY
     Dosage: 0.75-5 MG
     Dates: start: 19920221
  6. VERAPAMIL [Concomitant]
     Indication: BLOOD PRESSURE
     Dosage: 120-400 MG
     Dates: start: 19951102
  7. TRIAMTERENE AND HYDROCHLOROTHIAZIDE [Concomitant]
     Dosage: 75/50 MG DISPENSED
     Dates: start: 20010503
  8. ABILIFY [Concomitant]
     Dosage: 10 MG DISPENSED
     Dates: start: 20030709
  9. TEMAZEPAM [Concomitant]
     Indication: INSOMNIA
     Dosage: 15 MG EVERY NIGHT AT BEDTIME AS NEEDED
     Route: 048
     Dates: start: 20040518
  10. LOVASTATIN [Concomitant]
     Dosage: 40 MG DISPENSED
     Route: 048
     Dates: start: 20050422
  11. LISINOPRIL [Concomitant]
     Dates: start: 20060307
  12. TERAZOSIN HCL [Concomitant]
     Route: 048
     Dates: start: 20060103
  13. HYDROCHLOROTHIAZIDE [Concomitant]
     Dosage: 37.5-50 MG DAILY
     Dates: start: 19920218
  14. ZOLOFT [Concomitant]
     Dosage: 50 MG QAM
     Route: 048
     Dates: start: 20010506
  15. TRILAFON [Concomitant]
     Dosage: 2-4 MG DISPENSED
     Dates: start: 19941231
  16. TAMOXIFEN CITRATE [Concomitant]
     Dosage: 10 MG DISPENSED
     Dates: start: 20030904
  17. AMITRIPTYLINE [Concomitant]
     Dosage: 10 MG DISPENSED
     Dates: start: 19931025

REACTIONS (1)
  - PANCREATITIS [None]
